FAERS Safety Report 7221938-6 (Version None)
Quarter: 2011Q1

REPORT INFORMATION
  Report Type: 
  Country: None (occurrence: None)
  Receive Date: 20110112
  Receipt Date: 20110105
  Transmission Date: 20110831
  Serious: Yes (Disabling, Other)
  Sender: FDA-Public Use
  Company Number: B0636023A

PATIENT
  Sex: Female
  Weight: 49 kg

DRUGS (3)
  1. VENTILAN [Suspect]
     Dosage: 4MG PER DAY
     Route: 048
     Dates: start: 20100127, end: 20100128
  2. EUTIROX [Suspect]
     Indication: HYPOTHYROIDISM
     Route: 048
     Dates: start: 20100110
  3. AERIUS [Concomitant]
     Dates: start: 20100126

REACTIONS (5)
  - COUGH [None]
  - DYSKINESIA [None]
  - PALPITATIONS [None]
  - TREMOR [None]
  - DRUG INTERACTION [None]
